FAERS Safety Report 17506361 (Version 1)
Quarter: 2020Q1

REPORT INFORMATION
  Report Type: Spontaneous
  Country: HR (occurrence: HR)
  Receive Date: 20200306
  Receipt Date: 20200306
  Transmission Date: 20200409
  Serious: Yes (Other)
  Sender: FDA-Public Use
  Company Number: HR-ASTRAZENECA-2020SE31043

PATIENT
  Age: 36 Year
  Sex: Female

DRUGS (3)
  1. LOQUEN [Suspect]
     Active Substance: QUETIAPINE FUMARATE
     Indication: PANIC ATTACK
     Route: 048
  2. MISAR [ALPRAZOLAM] [Suspect]
     Active Substance: ALPRAZOLAM
     Indication: PANIC ATTACK
     Dosage: 1.5 MG IN SEVERAL DIVIDED DOSES
     Route: 065
  3. SERPENTIL [RESERPINE] [Suspect]
     Active Substance: RESERPINE
     Indication: PANIC ATTACK
     Route: 065

REACTIONS (1)
  - Heart rate irregular [Unknown]

NARRATIVE: CASE EVENT DATE: 202002
